FAERS Safety Report 11273979 (Version 2)
Quarter: 2015Q3

REPORT INFORMATION
  Report Type: Spontaneous
  Country: US (occurrence: US)
  Receive Date: 20150715
  Receipt Date: 20150721
  Transmission Date: 20151125
  Serious: Yes (Other)
  Sender: FDA-Public Use
  Company Number: US-PFIZER INC-2015234372

PATIENT
  Age: 77 Year
  Sex: Female
  Weight: 82 kg

DRUGS (26)
  1. SIMVASTATIN. [Concomitant]
     Active Substance: SIMVASTATIN
     Indication: BLOOD CHOLESTEROL INCREASED
     Dosage: 40 MG, 1X/DAY, AT BEDTIME (AT NIGHT)
     Route: 048
  2. VITAMIN D [Concomitant]
     Active Substance: CHOLECALCIFEROL
  3. KLOR-CON ER [Concomitant]
     Indication: ELECTROLYTE IMBALANCE
     Dosage: 20 MG, 1X/DAY, AT NIGHT
     Route: 048
     Dates: start: 2010
  4. BABY ASPIRIN [Concomitant]
     Active Substance: ASPIRIN
     Dosage: 81 MG, 1X/DAY AT NIGHT
     Route: 048
  5. FUROSEMIDE. [Concomitant]
     Active Substance: FUROSEMIDE
     Indication: CARDIAC DISORDER
     Dosage: 20 MG, 1X/DAY, IN THE MORNING
     Route: 048
     Dates: start: 2010
  6. FUROSEMIDE. [Concomitant]
     Active Substance: FUROSEMIDE
     Indication: CARDIAC VALVE DISEASE
  7. COQ 10 [Concomitant]
     Active Substance: UBIDECARENONE
     Dosage: 100 MG, DAILY
     Route: 048
  8. SUPER B COMPLEX [Concomitant]
     Active Substance: CYANOCOBALAMIN\DEXPANTHENOL\NIACINAMIDE\PYRIDOXINE HYDROCHLORIDE\RIBOFLAVIN 5^-PHOSPHATE SODIUM\THIAMINE HYDROCHLORIDE\VITAMIN B COMPLEX
     Indication: SUPPLEMENTATION THERAPY
     Dosage: 1 DF, 1X/DAY
     Route: 048
  9. LYRICA [Suspect]
     Active Substance: PREGABALIN
     Indication: SPINAL COLUMN STENOSIS
     Dosage: 75 MG, 3X/DAY
     Route: 048
     Dates: start: 20150615, end: 20150708
  10. KLOR-CON ER [Concomitant]
     Dosage: 20 MEQ, 1X/DAY AT NIGHT
     Route: 048
  11. OMEPRAZOLE. [Concomitant]
     Active Substance: OMEPRAZOLE
     Indication: GASTROOESOPHAGEAL REFLUX DISEASE
     Dosage: 40 MG, 1X/DAY
     Route: 048
  12. ESTER C [Concomitant]
     Indication: SUPPLEMENTATION THERAPY
     Dosage: 1000 MG, UNK
  13. ACIDOPHILUS [Concomitant]
     Active Substance: LACTOBACILLUS ACIDOPHILUS
     Dosage: 1 BILLION ACTIVE CULTURES, 1X/DAY
  14. VITAMIN E-400 [Concomitant]
     Dosage: UNK UNK, 2X/DAY (ONE IN MORNING ONE AT NIGHT)
  15. LYRICA [Suspect]
     Active Substance: PREGABALIN
     Indication: NEUROPATHY PERIPHERAL
     Dosage: 50 MG, 3X/DAY
     Route: 048
  16. LOSARTAN. [Concomitant]
     Active Substance: LOSARTAN
     Indication: HYPERTENSION
     Dosage: 50 MG, 1X/DAY
     Route: 048
     Dates: start: 20140924
  17. POWKR [Concomitant]
     Indication: DIARRHOEA
     Dosage: 4 G, AS NEEDED
  18. GLUCOSAMINE + CHONDROITIN [Concomitant]
     Dosage: [GLUCOSAMINE 1500MG/CHONDROITIN 200MG], 2X/DAY
     Route: 048
  19. VITAMIN B3 [Concomitant]
     Active Substance: NIACIN
     Dosage: 5000 IU, UNK
  20. GARLIC. [Concomitant]
     Active Substance: GARLIC
     Dosage: 1000 MG, 1X/DAY
     Route: 048
  21. CENTRUM SILVER [Concomitant]
     Active Substance: VITAMINS
     Indication: SUPPLEMENTATION THERAPY
     Dosage: UNK
  22. SERTRALINE [Concomitant]
     Active Substance: SERTRALINE HYDROCHLORIDE
     Indication: DEPRESSION
     Dosage: 100 MG, 1X/DAY, IN THE MORNING
     Route: 048
     Dates: start: 20140924
  23. CALCIUM [Concomitant]
     Active Substance: CALCIUM
     Dosage: 600 MG, DAILY
     Route: 048
  24. GINKGO BILOBA [Concomitant]
     Active Substance: GINKGO
     Indication: PROPHYLAXIS
     Dosage: 120 MG, 1X/DAY
     Route: 048
  25. LYRICA [Suspect]
     Active Substance: PREGABALIN
     Dosage: 100 MG, 3X/DAY
     Route: 048
     Dates: start: 20150709
  26. CARVEDILOL. [Concomitant]
     Active Substance: CARVEDILOL
     Indication: HEART VALVE REPLACEMENT
     Dosage: 3.125 MG, 1X/DAY, AT BEDTIME (AT NIGHT)
     Route: 048
     Dates: start: 2010

REACTIONS (10)
  - Rib fracture [Unknown]
  - Movement disorder [Unknown]
  - Speech disorder [Unknown]
  - Contusion [Unknown]
  - Drug effect incomplete [Unknown]
  - Head injury [Unknown]
  - Headache [Recovering/Resolving]
  - Fall [Unknown]
  - Dyskinesia [Unknown]
  - Feeling abnormal [Unknown]

NARRATIVE: CASE EVENT DATE: 201502
